FAERS Safety Report 8129463-5 (Version None)
Quarter: 2012Q1

REPORT INFORMATION
  Report Type: 
  Country: None (occurrence: None)
  Receive Date: 20120103
  Receipt Date: 20111108
  Transmission Date: 20120608
  Serious: Yes (Other)
  Sender: FDA-Public Use
  Company Number: AE-2011-002048

PATIENT
  Age: 52 Year
  Sex: Male
  Weight: 72.5755 kg

DRUGS (7)
  1. INCIVEK [Suspect]
     Dosage: 2250 MG (750 MG 3 IN 1 D), ORAL
     Route: 048
     Dates: start: 20110818
  2. TRAZODONE HCL [Concomitant]
  3. LORAZEPAM [Concomitant]
  4. CITALOPRAM HYDROBROMIDE [Concomitant]
  5. RIBAVIRIN [Concomitant]
  6. FAMOTIDINE [Concomitant]
  7. PEGASYS [Concomitant]

REACTIONS (7)
  - RASH PRURITIC [None]
  - VOMITING [None]
  - ANAL PRURITUS [None]
  - VISION BLURRED [None]
  - ANORECTAL DISCOMFORT [None]
  - HAIR GROWTH ABNORMAL [None]
  - RASH [None]
